FAERS Safety Report 11734201 (Version 1)
Quarter: 2015Q4

REPORT INFORMATION
  Report Type: Spontaneous
  Country: None (occurrence: US)
  Receive Date: 20151113
  Receipt Date: 20151113
  Transmission Date: 20160304
  Serious: No
  Sender: FDA-Public Use
  Company Number: US-GUERBET LLC-1044149

PATIENT
  Age: 40 Year
  Sex: Female

DRUGS (1)
  1. OXILAN [Suspect]
     Active Substance: IOXILAN
     Indication: COMPUTERISED TOMOGRAM
     Dates: start: 20070321, end: 20070321

REACTIONS (1)
  - Nausea [Recovered/Resolved]

NARRATIVE: CASE EVENT DATE: 20070321
